FAERS Safety Report 6389467-X (Version None)
Quarter: 2009Q4

REPORT INFORMATION
  Report Type: 
  Country: None (occurrence: None)
  Receive Date: 20091006
  Receipt Date: 20090928
  Transmission Date: 20100525
  Serious: Yes (Death, Hospitalization, Other)
  Sender: FDA-Public Use
  Company Number: US-ROCHE-658807

PATIENT
  Age: 67 Year
  Sex: Male

DRUGS (8)
  1. CAPECITABINE [Suspect]
     Route: 065
  2. CAPECITABINE [Suspect]
     Route: 065
  3. GEMCITABINE [Suspect]
     Route: 042
  4. GEMCITABINE [Suspect]
     Route: 042
  5. DOCETAXEL [Suspect]
     Route: 042
  6. DOCETAXEL [Suspect]
     Route: 042
  7. RAPAMYCIN [Suspect]
     Route: 065
  8. RAPAMYCIN [Suspect]
     Route: 065

REACTIONS (6)
  - ASCITES [None]
  - DISSEMINATED INTRAVASCULAR COAGULATION [None]
  - HYPOTENSION [None]
  - MALIGNANT NEOPLASM PROGRESSION [None]
  - PORTAL VEIN THROMBOSIS [None]
  - SUBCLAVIAN VEIN THROMBOSIS [None]
